FAERS Safety Report 26118234 (Version 1)
Quarter: 2025Q4

REPORT INFORMATION
  Report Type: Spontaneous
  Country: CN (occurrence: CN)
  Receive Date: 20251203
  Receipt Date: 20251203
  Transmission Date: 20260118
  Serious: Yes (Other)
  Sender: ELI LILLY AND COMPANY
  Company Number: CN-Merck Healthcare KGaA-2025060530

PATIENT
  Age: 67 Year
  Sex: Male
  Weight: 50 kg

DRUGS (1)
  1. ERBITUX [Suspect]
     Active Substance: CETUXIMAB
     Indication: Rectal cancer
     Dosage: 400 MG, UNKNOWN
     Route: 041
     Dates: start: 20251124, end: 20251124

REACTIONS (1)
  - Hyperpyrexia [Recovered/Resolved]

NARRATIVE: CASE EVENT DATE: 20251124
